FAERS Safety Report 7584915-1 (Version None)
Quarter: 2011Q2

REPORT INFORMATION
  Report Type: 
  Country: None (occurrence: None)
  Receive Date: 20110630
  Receipt Date: 20110621
  Transmission Date: 20111010
  Serious: Yes (Hospitalization)
  Sender: FDA-Public Use
  Company Number: RU-AMGEN-RUSCT2011024479

PATIENT
  Age: 45 Year
  Sex: Male

DRUGS (4)
  1. PLACEBO [Suspect]
     Indication: HYPERPARATHYROIDISM SECONDARY
     Dosage: UNK
     Dates: start: 20061115
  2. CINACALCET HYDROCHLORIDE [Suspect]
     Indication: HYPERPARATHYROIDISM SECONDARY
     Dosage: UNK
     Dates: start: 20061115
  3. CALCIUM CARBONATE [Concomitant]
     Dosage: 5 G, UNK
     Dates: start: 20091209
  4. CALCITRIOL [Concomitant]
     Dosage: UNK
     Dates: start: 20110103

REACTIONS (2)
  - ARTERIOVENOUS FISTULA SITE COMPLICATION [None]
  - HYPERPARATHYROIDISM SECONDARY [None]
